FAERS Safety Report 9156567 (Version 1)
Quarter: 2013Q1

REPORT INFORMATION
  Report Type: Spontaneous
  Country: GB (occurrence: None)
  Receive Date: 20130206
  Receipt Date: 20130206
  Transmission Date: 20140127
  Serious: Yes (Life-Threatening, Hospitalization)
  Sender: FDA-Public Use
  Company Number: 2013-00143

PATIENT
  Age: 76 Year
  Sex: Female

DRUGS (8)
  1. QUETIAPINE (UNKNOWN) [Suspect]
     Indication: ANXIETY
     Route: 048
     Dates: start: 20111128, end: 20121221
  2. ASPIRIN [Concomitant]
  3. BISOPROLOL [Concomitant]
  4. PERINDOPRIL [Suspect]
  5. SERTRALINE [Concomitant]
  6. SIMVASTATIN [Concomitant]
  7. WARFFARIN [Concomitant]
  8. ZOPICLONE [Concomitant]

REACTIONS (11)
  - Cardiac arrest [None]
  - Hypocalcaemia [None]
  - Electrocardiogram QT prolonged [None]
  - Dyspnoea [None]
  - Sick sinus syndrome [None]
  - Fatigue [None]
  - Torsade de pointes [None]
  - Ventricular tachycardia [None]
  - Malaise [None]
  - Heart rate increased [None]
  - Blood pressure decreased [None]
